FAERS Safety Report 5206910-X (Version None)
Quarter: 2007Q1

REPORT INFORMATION
  Report Type: 
  Country: None (occurrence: None)
  Receive Date: 20070105
  Receipt Date: 20070105
  Transmission Date: 20070707
  Serious: Yes (Hospitalization)
  Sender: FDA-Public Use
  Company Number: None

PATIENT
  Age: 49 Year
  Sex: Male

DRUGS (7)
  1. ATENOLOL [Suspect]
     Indication: SUICIDE ATTEMPT
     Dosage: 1500MG PO X 1
     Route: 048
     Dates: start: 20060503
  2. RISPERDAL [Concomitant]
  3. FUROSEMIDE [Concomitant]
  4. SPIRONOLACTONE [Concomitant]
  5. ALBUTEROL [Concomitant]
  6. FERROUS SULFATE TAB [Concomitant]
  7. FLUTICASONE PROPIONATE [Concomitant]

REACTIONS (4)
  - BLOOD PRESSURE DIASTOLIC DECREASED [None]
  - BLOOD PRESSURE SYSTOLIC INCREASED [None]
  - INCORRECT DOSE ADMINISTERED [None]
  - SUICIDE ATTEMPT [None]
